FAERS Safety Report 20462540 (Version 2)
Quarter: 2022Q1

REPORT INFORMATION
  Report Type: Spontaneous
  Country: TW (occurrence: TW)
  Receive Date: 20220211
  Receipt Date: 20220216
  Transmission Date: 20220423
  Serious: Yes (Death, Hospitalization, Other)
  Sender: FDA-Public Use
  Company Number: TW-PFIZER INC-202200235564

PATIENT
  Age: 68 Year
  Sex: Female

DRUGS (1)
  1. XELJANZ XR [Suspect]
     Active Substance: TOFACITINIB CITRATE
     Indication: Rheumatoid arthritis
     Dosage: 11 MG, QD
     Route: 048
     Dates: start: 20220115, end: 20220125

REACTIONS (4)
  - Sepsis [Fatal]
  - Breast cancer [Unknown]
  - White blood cell count decreased [Unknown]
  - Wound infection [Unknown]

NARRATIVE: CASE EVENT DATE: 20220126
